FAERS Safety Report 8985174 (Version 2)
Quarter: 2013Q1

REPORT INFORMATION
  Report Type: Spontaneous
  Country: SE (occurrence: SE)
  Receive Date: 20121224
  Receipt Date: 20130107
  Transmission Date: 20140127
  Serious: Yes (Disabling, Other)
  Sender: FDA-Public Use
  Company Number: SE-ELI_LILLY_AND_COMPANY-SE201212006089

PATIENT
  Sex: Female

DRUGS (1)
  1. ZYPREXA [Suspect]
     Indication: PSYCHOTIC DISORDER
     Dosage: 2.5 MG, UNKNOWN
     Dates: start: 2003, end: 2011

REACTIONS (5)
  - Abasia [Not Recovered/Not Resolved]
  - Deep vein thrombosis [Not Recovered/Not Resolved]
  - Weight increased [Not Recovered/Not Resolved]
  - Obesity [Not Recovered/Not Resolved]
  - Increased appetite [Not Recovered/Not Resolved]
